FAERS Safety Report 19410883 (Version 5)
Quarter: 2022Q1

REPORT INFORMATION
  Report Type: Report from Study
  Country: US (occurrence: None)
  Receive Date: 20210614
  Receipt Date: 20220131
  Transmission Date: 20220424
  Serious: Yes (Life-Threatening, Hospitalization, Other)
  Sender: FDA-Public Use
  Company Number: US-ROCHE-2844472

PATIENT
  Age: 53 Year
  Sex: Male
  Weight: 117.48 kg

DRUGS (4)
  1. IBRUTINIB [Suspect]
     Active Substance: IBRUTINIB
     Indication: Chronic lymphocytic leukaemia
     Dosage: ON DAYS 1-28,?ON 28/APR/2021, HE RECEIVED THE MOST RECENT DOSE?DATE OF LAST DOSE OF IBRUTINIB ADMIN
     Route: 048
     Dates: start: 20210428
  2. OBINUTUZUMAB [Suspect]
     Active Substance: OBINUTUZUMAB
     Indication: Chronic lymphocytic leukaemia
     Dosage: 100 MG IV ON DAY 1, CYCLE 1, 900 MG IV ON DAY 2, CYCLE 1,1000 MG IV ON DAY 8, CYCLE 1,1000 MG IV ON
     Route: 042
     Dates: start: 20210428
  3. OBINUTUZUMAB [Suspect]
     Active Substance: OBINUTUZUMAB
     Dosage: ON DAY 2, CYCLE 1
     Route: 042
  4. OBINUTUZUMAB [Suspect]
     Active Substance: OBINUTUZUMAB
     Dosage: ON DAY 8, CYCLE 1?1000 MG IV ON DAY 15, CYCLE 1?1000 MG IV ON DAY 1, CYCLE 2-6
     Route: 042

REACTIONS (6)
  - Hypoxia [Not Recovered/Not Resolved]
  - Infusion related reaction [Recovered/Resolved]
  - Platelet count decreased [Recovered/Resolved]
  - COVID-19 [Not Recovered/Not Resolved]
  - Respiratory failure [Not Recovered/Not Resolved]
  - Pneumonia [Not Recovered/Not Resolved]

NARRATIVE: CASE EVENT DATE: 20210428
